FAERS Safety Report 22696176 (Version 3)
Quarter: 2023Q4

REPORT INFORMATION
  Report Type: Report from Study
  Country: JP (occurrence: JP)
  Receive Date: 20230712
  Receipt Date: 20231201
  Transmission Date: 20240110
  Serious: No
  Sender: FDA-Public Use
  Company Number: JP-ARGENX-2022-ARGX-JP002267

PATIENT

DRUGS (18)
  1. VYVGART [Suspect]
     Active Substance: EFGARTIGIMOD ALFA-FCAB
     Indication: Myasthenia gravis
     Dosage: 500 MG
     Route: 041
     Dates: start: 20221013, end: 20221027
  2. VYVGART [Suspect]
     Active Substance: EFGARTIGIMOD ALFA-FCAB
     Dosage: 500 MG
     Route: 041
     Dates: start: 20221208, end: 20221223
  3. PREDONINE [Concomitant]
     Active Substance: PREDNISOLONE
     Indication: Myasthenia gravis
     Dosage: INCREASED FROM 5 MG TO 10 MG
     Route: 065
     Dates: start: 2018, end: 2018
  4. PREDONINE [Concomitant]
     Active Substance: PREDNISOLONE
     Dosage: TAPERED FROM 10 MG
     Route: 065
     Dates: start: 2018, end: 201905
  5. PREDONINE [Concomitant]
     Active Substance: PREDNISOLONE
     Dosage: INCREASED TO 40 MG AND DECREASED TO 20 MG
     Route: 065
     Dates: start: 201905, end: 2019
  6. PREDONINE [Concomitant]
     Active Substance: PREDNISOLONE
     Dosage: TAPERED FROM 20 MG TO 10 MG
     Route: 065
     Dates: start: 2019, end: 2019
  7. PREDONINE [Concomitant]
     Active Substance: PREDNISOLONE
     Dosage: 10 MG
     Route: 065
     Dates: start: 2019, end: 202002
  8. PREDONINE [Concomitant]
     Active Substance: PREDNISOLONE
     Dosage: INCREASED TO 40 MG AND DECREASED TO 30 MG
     Route: 065
     Dates: start: 202002, end: 2020
  9. PREDONINE [Concomitant]
     Active Substance: PREDNISOLONE
     Dosage: TAPERED FROM 30 MG TO 20 MG
     Route: 065
     Dates: start: 2020, end: 2020
  10. PREDONINE [Concomitant]
     Active Substance: PREDNISOLONE
     Dosage: TAPERED FROM 20 MG TO 10 MG
     Route: 065
     Dates: start: 2020, end: 2022
  11. PREDONINE [Concomitant]
     Active Substance: PREDNISOLONE
     Dosage: 10 MG
     Route: 048
     Dates: start: 20220722
  12. PROGRAF [Concomitant]
     Active Substance: TACROLIMUS
     Indication: Myasthenia gravis
     Dosage: 3 MG
     Route: 048
     Dates: start: 2018
  13. MESTINON [Concomitant]
     Active Substance: PYRIDOSTIGMINE BROMIDE
     Indication: Myasthenia gravis
     Dosage: 180 MG
     Route: 048
     Dates: start: 2018
  14. VONOPRAZAN FUMARATE [Concomitant]
     Active Substance: VONOPRAZAN FUMARATE
     Indication: Product used for unknown indication
     Dosage: 10 MG
     Route: 048
     Dates: start: 2018
  15. SULFAMETHOXAZOLE\TRIMETHOPRIM [Concomitant]
     Active Substance: SULFAMETHOXAZOLE\TRIMETHOPRIM
     Indication: Product used for unknown indication
     Dosage: 1 DF
     Route: 048
     Dates: start: 20190613
  16. BONALON [Concomitant]
     Active Substance: ALENDRONATE SODIUM
     Indication: Product used for unknown indication
     Dosage: 35 MG/WEEK
     Route: 048
     Dates: start: 20190622
  17. ROSUVASTATIN [Concomitant]
     Active Substance: ROSUVASTATIN
     Indication: Product used for unknown indication
     Dosage: 2.5 MG
     Route: 048
     Dates: start: 20201002
  18. DIENOGEST [Concomitant]
     Active Substance: DIENOGEST
     Indication: Product used for unknown indication
     Dosage: 2 MG
     Route: 048
     Dates: start: 2020

REACTIONS (8)
  - Blood albumin increased [Recovered/Resolved]
  - Blood albumin increased [Recovered/Resolved]
  - Symptom recurrence [Recovering/Resolving]
  - Symptom recurrence [Recovering/Resolving]
  - COVID-19 [Recovered/Resolved]
  - Therapy interrupted [Unknown]
  - Therapy interrupted [Unknown]
  - Therapy cessation [Unknown]

NARRATIVE: CASE EVENT DATE: 20221027
